FAERS Safety Report 6854943-X (Version None)
Quarter: 2010Q3

REPORT INFORMATION
  Report Type: 
  Country: None (occurrence: None)
  Receive Date: 20100717
  Receipt Date: 20080229
  Transmission Date: 20110219
  Serious: No
  Sender: FDA-Public Use
  Company Number: US-PFIZER INC-2008002434

PATIENT
  Sex: Female
  Weight: 85.5 kg

DRUGS (17)
  1. CHANTIX [Suspect]
     Indication: SMOKING CESSATION THERAPY
     Dates: start: 20071217
  2. METFORMIN HCL [Concomitant]
  3. LYRICA [Concomitant]
  4. OMACOR [Concomitant]
  5. NEXIUM [Concomitant]
  6. LIPITOR [Concomitant]
  7. CYMBALTA [Concomitant]
  8. AMITRIPTYLINE HYDROCHLORIDE [Concomitant]
  9. ARTANE [Concomitant]
  10. CELEBREX [Concomitant]
  11. VALIUM [Concomitant]
  12. BENADRYL [Concomitant]
  13. MULTI-VITAMINS [Concomitant]
  14. ACETAMINOPHEN [Concomitant]
  15. ANTACID TAB [Concomitant]
  16. FIBRE, DIETARY [Concomitant]
  17. HERBAL PREPARATION [Concomitant]

REACTIONS (2)
  - DRUG DOSE OMISSION [None]
  - WEIGHT INCREASED [None]
